FAERS Safety Report 22325582 (Version 1)
Quarter: 2023Q2

REPORT INFORMATION
  Report Type: Spontaneous
  Country: US (occurrence: None)
  Receive Date: 20230516
  Receipt Date: 20230516
  Transmission Date: 20230721
  Serious: No
  Sender: FDA-Public Use
  Company Number: None

PATIENT

DRUGS (3)
  1. METHOTREXATE [Suspect]
     Active Substance: METHOTREXATE
     Route: 058
  2. DEVICE [Suspect]
     Active Substance: DEVICE
  3. DEVICE [Suspect]
     Active Substance: DEVICE

REACTIONS (5)
  - Device dispensing error [None]
  - Product label confusion [None]
  - Drug monitoring procedure not performed [None]
  - Device difficult to use [None]
  - Incorrect route of product administration [None]

NARRATIVE: CASE EVENT DATE: 20230303
